FAERS Safety Report 8175340-3 (Version None)
Quarter: 2012Q1

REPORT INFORMATION
  Report Type: 
  Country: None (occurrence: None)
  Receive Date: 20120229
  Receipt Date: 20120229
  Transmission Date: 20120608
  Serious: Yes (Other)
  Sender: FDA-Public Use
  Company Number: US-PFIZER INC-2012012850

PATIENT
  Age: 54 Year
  Sex: Male
  Weight: 118.3 kg

DRUGS (2)
  1. TIKOSYN [Suspect]
     Dosage: 500 UG, UNK
  2. ULTRAM [Concomitant]
     Dosage: UNK

REACTIONS (7)
  - CARDIAC FAILURE [None]
  - SOMNOLENCE [None]
  - ANAPHYLACTOID REACTION [None]
  - FATIGUE [None]
  - MEDICATION ERROR [None]
  - CARDIAC DISORDER [None]
  - DRUG DOSE OMISSION [None]
